FAERS Safety Report 16403183 (Version 1)
Quarter: 2019Q2

REPORT INFORMATION
  Report Type: Report from Study
  Country: BR (occurrence: BR)
  Receive Date: 20190607
  Receipt Date: 20190607
  Transmission Date: 20190711
  Serious: Yes (Other)
  Sender: FDA-Public Use
  Company Number: BR-UCBSA-2019022965

PATIENT
  Sex: Male
  Weight: 85 kg

DRUGS (8)
  1. LEVETIRACETAM. [Suspect]
     Active Substance: LEVETIRACETAM
     Indication: SEIZURE
     Dosage: 250 MILLIGRAM, 2X/DAY (BID)
     Route: 048
     Dates: start: 201712
  2. LEVETIRACETAM. [Suspect]
     Active Substance: LEVETIRACETAM
     Dosage: 250 MILLIGRAM, 3X/DAY (TID)
     Route: 048
  3. NEXIUM [Concomitant]
     Active Substance: ESOMEPRAZOLE MAGNESIUM
     Indication: ABDOMINAL DISCOMFORT
     Dosage: UNK, 2X/DAY (BID)
     Route: 048
  4. MUVINLAX [Concomitant]
     Active Substance: ELECTROLYTES NOS\POLYETHYLENE GLYCOL 3350
     Indication: GASTROINTESTINAL DISORDER
     Dosage: UNK, 2X/DAY (BID)
     Route: 048
  5. QUETROS [Concomitant]
     Active Substance: QUETIAPINE
     Indication: FEELING OF RELAXATION
     Dosage: UNK, ONCE DAILY (QD)
     Route: 048
  6. EUTHYROX [Concomitant]
     Active Substance: LEVOTHYROXINE SODIUM
     Indication: THYROID DISORDER
     Dosage: UNK, ONCE DAILY (QD)
     Route: 048
  7. METICORTEN [Concomitant]
     Active Substance: PREDNISONE
     Indication: HEAD DISCOMFORT
     Dosage: UNK
     Route: 048
  8. LUFTAL [Concomitant]
     Active Substance: DIMETHICONE
     Indication: ABDOMINAL DISCOMFORT
     Dosage: UNK, 2X/DAY (BID)
     Route: 048

REACTIONS (4)
  - Craniopharyngioma [Unknown]
  - Off label use [Unknown]
  - Drug ineffective [Unknown]
  - Motor dysfunction [Unknown]

NARRATIVE: CASE EVENT DATE: 2018
